FAERS Safety Report 11398034 (Version 4)
Quarter: 2015Q3

REPORT INFORMATION
  Report Type: Spontaneous
  Country: TW (occurrence: TW)
  Receive Date: 20150820
  Receipt Date: 20150914
  Transmission Date: 20151125
  Serious: Yes (Hospitalization)
  Sender: FDA-Public Use
  Company Number: TW-ABBVIE-15K-153-1444892-00

PATIENT
  Age: 60 Year
  Sex: Female
  Weight: 47 kg

DRUGS (1)
  1. HUMIRA [Suspect]
     Active Substance: ADALIMUMAB
     Indication: RHEUMATOID ARTHRITIS
     Route: 058
     Dates: start: 20080530, end: 20150715

REACTIONS (15)
  - Intervertebral disc protrusion [Unknown]
  - Activated partial thromboplastin time prolonged [Unknown]
  - Neutrophil count increased [Recovered/Resolved]
  - Lymphocyte count decreased [Recovered/Resolved]
  - Aspartate aminotransferase increased [Unknown]
  - Pain in extremity [Unknown]
  - Blood creatinine decreased [Unknown]
  - Haemoglobin decreased [Unknown]
  - Dislocation of vertebra [Recovering/Resolving]
  - Blood potassium increased [Recovered/Resolved]
  - Blood potassium decreased [Recovered/Resolved]
  - Spinal osteoarthritis [Unknown]
  - Crowned dens syndrome [Unknown]
  - Spondylolisthesis [Unknown]
  - Kyphosis [Unknown]

NARRATIVE: CASE EVENT DATE: 201502
